FAERS Safety Report 15584493 (Version 1)
Quarter: 2018Q4

REPORT INFORMATION
  Report Type: Spontaneous
  Country: US (occurrence: US)
  Receive Date: 20181105
  Receipt Date: 20181105
  Transmission Date: 20190205
  Serious: Yes (Hospitalization)
  Sender: FDA-Public Use
  Company Number: None

PATIENT
  Age: 85 Year
  Sex: Female
  Weight: 97.1 kg

DRUGS (1)
  1. ERTAPENEM. [Suspect]
     Active Substance: ERTAPENEM SODIUM
     Indication: SEPSIS
     Route: 042
     Dates: start: 20180927, end: 20180928

REACTIONS (2)
  - Therapy change [None]
  - Urticaria [None]

NARRATIVE: CASE EVENT DATE: 20180928
